FAERS Safety Report 8776182 (Version 2)
Quarter: 2012Q4

REPORT INFORMATION
  Report Type: 
  Country: AU (occurrence: AU)
  Receive Date: 20120910
  Receipt Date: 20121019
  Transmission Date: 20130627
  Serious: Yes (Death, Hospitalization)
  Sender: FDA-Public Use
  Company Number: AU-B.I. PHARMACEUTICALS,INC./RIDGEFIELD-2012-AU-01583AU

PATIENT
  Age: 94 None
  Sex: Female
  Weight: 42 kg

DRUGS (9)
  1. PRADAXA [Suspect]
     Indication: CEREBROVASCULAR ACCIDENT PROPHYLAXIS
     Dosage: 220 mg
     Dates: start: 20110814
  2. PRADAXA [Suspect]
     Indication: ATRIAL FIBRILLATION
  3. CIPRAMIL [Concomitant]
     Dosage: 20 mg
  4. LANOXIN [Concomitant]
     Dosage: 62.5 mcg
  5. LOPRESSOR [Concomitant]
     Dosage: 50 mg
  6. LASIX [Concomitant]
     Dosage: 60 mg
  7. SLOW K [Concomitant]
     Dosage: 600 mg
  8. TRITACE [Concomitant]
     Dosage: 2.5 mg
  9. PROTON PUMP INHIBITORS [Concomitant]

REACTIONS (5)
  - Pneumonia aspiration [Fatal]
  - Fall [Unknown]
  - Haemorrhage [Unknown]
  - Confusional state [Unknown]
  - Urinary tract infection [Unknown]
